FAERS Safety Report 16441600 (Version 1)
Quarter: 2019Q2

REPORT INFORMATION
  Report Type: Report from Study
  Country: NO (occurrence: NO)
  Receive Date: 20190617
  Receipt Date: 20190617
  Transmission Date: 20190711
  Serious: Yes (Death)
  Sender: FDA-Public Use
  Company Number: NO-PFIZER INC-2019256792

PATIENT
  Sex: Male

DRUGS (2)
  1. ADRIAMYCIN [Suspect]
     Active Substance: DOXORUBICIN HYDROCHLORIDE
     Indication: TESTICULAR GERM CELL TUMOUR
     Dosage: 50 MG/M2, CYCLIC (DAY 2, CUMULATIVE DOSE 1200 MG REPEATED AT 3-WEEK INTERVALS)
  2. CYCLOPHOSPHAMIDE. [Suspect]
     Active Substance: CYCLOPHOSPHAMIDE
     Indication: TESTICULAR GERM CELL TUMOUR
     Dosage: 500 MG/M2, CYCLIC (DAY 2, CUMULATIVE DOSE 42400 MG,REPEATED AT 3-WEEK INTERVALS)

REACTIONS (2)
  - Peptic ulcer [Fatal]
  - Varices oesophageal [Fatal]
